FAERS Safety Report 7427758-1 (Version None)
Quarter: 2011Q2

REPORT INFORMATION
  Report Type: 
  Country: None (occurrence: None)
  Receive Date: 20110421
  Receipt Date: 20110413
  Transmission Date: 20111010
  Serious: Yes (Other)
  Sender: FDA-Public Use
  Company Number: US-ELI_LILLY_AND_COMPANY-US201104004189

PATIENT
  Age: 63 Year
  Sex: Female

DRUGS (3)
  1. CYMBALTA [Suspect]
     Dosage: 90 MG, QD
  2. CYMBALTA [Suspect]
     Dosage: 60 MG, QD
  3. CYMBALTA [Suspect]
     Indication: FIBROMYALGIA
     Dosage: 120 MG, QD
     Dates: start: 20070101

REACTIONS (19)
  - BRONCHOSPASM [None]
  - MOOD SWINGS [None]
  - NAUSEA [None]
  - ANORECTAL DISORDER [None]
  - INFLUENZA [None]
  - COUGH [None]
  - DRUG WITHDRAWAL SYNDROME [None]
  - HYPERHIDROSIS [None]
  - MEMORY IMPAIRMENT [None]
  - NIGHTMARE [None]
  - TREMOR [None]
  - ANXIETY [None]
  - DYSPNOEA [None]
  - FEELING OF BODY TEMPERATURE CHANGE [None]
  - PARAESTHESIA [None]
  - SURGERY [None]
  - CHEST DISCOMFORT [None]
  - BLADDER DISORDER [None]
  - FEELING ABNORMAL [None]
